FAERS Safety Report 5514614-9 (Version None)
Quarter: 2007Q4

REPORT INFORMATION
  Report Type: 
  Country: None (occurrence: None)
  Receive Date: 20071113
  Receipt Date: 20071107
  Transmission Date: 20080405
  Serious: Yes (Hospitalization, Other)
  Sender: FDA-Public Use
  Company Number: AU-AVENTIS-200720309GDDC

PATIENT
  Age: 16 Year
  Sex: Female

DRUGS (2)
  1. LANTUS [Suspect]
     Route: 058
  2. LANTUS [Suspect]
     Route: 058

REACTIONS (7)
  - CONFUSIONAL STATE [None]
  - DISTURBANCE IN ATTENTION [None]
  - FATIGUE [None]
  - HEPATOMEGALY [None]
  - HYPERGLYCAEMIA [None]
  - HYPOGLYCAEMIA [None]
  - MALAISE [None]
